FAERS Safety Report 4361218-X (Version None)
Quarter: 2004Q2

REPORT INFORMATION
  Report Type: 
  Country: None (occurrence: None)
  Receive Date: 20040518
  Receipt Date: 20040322
  Transmission Date: 20050107
  Serious: No
  Sender: FDA-Public Use
  Company Number: RS004333-USA

PATIENT
  Age: 74 Year
  Sex: Female

DRUGS (7)
  1. ACIPHEX [Suspect]
     Indication: GASTROOESOPHAGEAL REFLUX DISEASE
     Dosage: ORAL
     Route: 048
     Dates: start: 20030811, end: 20040301
  2. DIOVAN [Concomitant]
  3. TOPROL-XL [Concomitant]
  4. VITRON-C (VITRON-C) [Concomitant]
  5. LABETALOL (LABETAL) [Concomitant]
  6. LASIX [Concomitant]
  7. KLOR-CON [Concomitant]

REACTIONS (2)
  - ATRIAL FIBRILLATION [None]
  - TREMOR [None]
